FAERS Safety Report 10733929 (Version 4)
Quarter: 2015Q3

REPORT INFORMATION
  Report Type: Spontaneous
  Country: FI (occurrence: FI)
  Receive Date: 20150123
  Receipt Date: 20150715
  Transmission Date: 20151125
  Serious: Yes (Hospitalization, Other)
  Sender: FDA-Public Use
  Company Number: FI-SA-2015SA002249

PATIENT
  Sex: Male

DRUGS (1)
  1. LEMTRADA [Suspect]
     Active Substance: ALEMTUZUMAB
     Indication: MULTIPLE SCLEROSIS
     Route: 042

REACTIONS (11)
  - Viral infection [Unknown]
  - Influenza [Unknown]
  - Fall [Unknown]
  - Pyrexia [Unknown]
  - Immune system disorder [Unknown]
  - Asthenia [Unknown]
  - Malaise [Unknown]
  - Dyspnoea [Unknown]
  - Lymphopenia [Unknown]
  - Head injury [Unknown]
  - Bacterial infection [Unknown]
